FAERS Safety Report 4573836-4 (Version None)
Quarter: 2005Q1

REPORT INFORMATION
  Report Type: 
  Country: None (occurrence: None)
  Receive Date: 20050203
  Receipt Date: 20050110
  Transmission Date: 20050727
  Serious: Yes (Other)
  Sender: FDA-Public Use
  Company Number: 05-080

PATIENT
  Age: 14 Year
  Sex: Female

DRUGS (1)
  1. FLUOXETINE ACETATE ORAL SOLUTION, 20 MG/5ML, PAR [Suspect]

REACTIONS (2)
  - DIZZINESS [None]
  - HYPOTENSION [None]
